FAERS Safety Report 16667389 (Version 1)
Quarter: 2019Q3

REPORT INFORMATION
  Report Type: Report from Study
  Country: CA (occurrence: CA)
  Receive Date: 20190805
  Receipt Date: 20190805
  Transmission Date: 20191004
  Serious: Yes (Other)
  Sender: FDA-Public Use
  Company Number: CA-JNJFOC-20190740680

PATIENT
  Age: 54 Year
  Sex: Male
  Weight: 98.6 kg

DRUGS (1)
  1. STELARA [Suspect]
     Active Substance: USTEKINUMAB
     Indication: PANNICULITIS
     Dosage: STRENGTH = 100MG.
     Route: 058
     Dates: start: 20180601

REACTIONS (3)
  - Pyoderma gangrenosum [Unknown]
  - Limb injury [Recovering/Resolving]
  - Skin laceration [Recovering/Resolving]

NARRATIVE: CASE EVENT DATE: 20190723
